FAERS Safety Report 4777954-7 (Version None)
Quarter: 2005Q3

REPORT INFORMATION
  Report Type: 
  Country: None (occurrence: None)
  Receive Date: 20050921
  Receipt Date: 20050901
  Transmission Date: 20060218
  Serious: Yes (Other)
  Sender: FDA-Public Use
  Company Number: GBS050918331

PATIENT
  Age: 46 Year
  Sex: Female

DRUGS (1)
  1. YENTREVE       (DULOXETINE HYDROCHLORIDE) [Suspect]
     Indication: STRESS INCONTINENCE
     Dosage: 40 MG

REACTIONS (3)
  - FATIGUE [None]
  - NARCOLEPSY [None]
  - NAUSEA [None]
